FAERS Safety Report 8449804-9 (Version None)
Quarter: 2012Q2

REPORT INFORMATION
  Report Type: 
  Country: None (occurrence: None)
  Receive Date: 20120613
  Receipt Date: 20120605
  Transmission Date: 20120825
  Serious: Yes (Hospitalization)
  Sender: FDA-Public Use
  Company Number: AUR-APL-2012-02456

PATIENT
  Age: 63 Year
  Sex: Female

DRUGS (12)
  1. OMEPRAZOLE [Concomitant]
  2. QUETIAPINE FUMARATE [Suspect]
     Indication: PRODUCT USED FOR UNKNOWN INDICATION
     Dosage: (800 MG),ORAL
     Route: 048
  3. LORAZEPAM [Concomitant]
  4. MONTELUKAST [Concomitant]
  5. ATORVASTATIN [Concomitant]
  6. TRIHEXYPHENIDYL HCL [Concomitant]
  7. VITAMIN D (VITAMIN D AND ANALOGUES) [Concomitant]
  8. PAROXETINE HCL [Suspect]
     Indication: PRODUCT USED FOR UNKNOWN INDICATION
     Dosage: (40 MG)
  9. SITAGLIPTIN [Concomitant]
  10. MEDROXYPROGESTERONE [Concomitant]
  11. ESTROPIPATE [Concomitant]
  12. FAMOTIDINE [Concomitant]

REACTIONS (13)
  - DISORIENTATION [None]
  - GASTROINTESTINAL HAEMORRHAGE [None]
  - LOBAR PNEUMONIA [None]
  - MOOD ALTERED [None]
  - DELIRIUM [None]
  - FEELING ABNORMAL [None]
  - HEPATIC ENZYME INCREASED [None]
  - CONFUSIONAL STATE [None]
  - BLOOD GLUCOSE INCREASED [None]
  - ELECTROCARDIOGRAM QT PROLONGED [None]
  - ABNORMAL BEHAVIOUR [None]
  - ANAEMIA [None]
  - HYPOKALAEMIA [None]
